FAERS Safety Report 15710603 (Version 2)
Quarter: 2019Q1

REPORT INFORMATION
  Report Type: Spontaneous
  Country: CH (occurrence: CH)
  Receive Date: 20181211
  Receipt Date: 20190117
  Transmission Date: 20190417
  Serious: Yes (Hospitalization)
  Sender: FDA-Public Use
  Company Number: CH-CELGENEUS-CHE-20180402533

PATIENT
  Age: 60 Year
  Sex: Female

DRUGS (1)
  1. OTEZLA [Suspect]
     Active Substance: APREMILAST
     Indication: PSORIASIS
     Dosage: 1 TABLET
     Route: 048
     Dates: start: 20180403, end: 20180919

REACTIONS (9)
  - Bronchitis [Unknown]
  - Malaise [Unknown]
  - Nausea [Recovered/Resolved]
  - Insomnia [Unknown]
  - Cough [Recovering/Resolving]
  - Erysipelas [Recovered/Resolved]
  - Chest pain [Recovered/Resolved]
  - Colitis [Recovered/Resolved]
  - Abdominal pain upper [Unknown]

NARRATIVE: CASE EVENT DATE: 20180404
